FAERS Safety Report 6622919 (Version 4)
Quarter: 2020Q3

REPORT INFORMATION
  Report Type: Spontaneous
  Country: US (occurrence: US)
  Receive Date: 20080424
  Receipt Date: 20100307
  Transmission Date: 20201105
  Serious: Yes (Death)
  Sender: FDA-Public Use
  Company Number: US-BAYER-200820508NA

PATIENT
  Age: 42 Year
  Sex: Female
  Weight: 49 kg

DRUGS (7)
  1. AVELOX [Suspect]
     Active Substance: MOXIFLOXACIN HYDROCHLORIDE
     Indication: PNEUMONIA
     Dates: start: 20070119, end: 20070131
  2. BACTRIM [Concomitant]
     Active Substance: SULFAMETHOXAZOLE\TRIMETHOPRIM
     Route: 048
     Dates: start: 20061218, end: 20070102
  3. DURAGESIC [Concomitant]
     Active Substance: FENTANYL
     Dosage: UNIT DOSE: 50 ?G
     Route: 062
  4. ATIVAN [Concomitant]
     Active Substance: LORAZEPAM
     Route: 048
  5. AVELOX [Suspect]
     Active Substance: MOXIFLOXACIN HYDROCHLORIDE
     Dosage: TOTAL DAILY DOSE: 400 MG  UNIT DOSE: 400 MG
     Route: 048
  6. MORPHINE SULFATE. [Concomitant]
     Active Substance: MORPHINE SULFATE
     Dosage: AS USED: 0.5?1.5 ML
     Route: 048
  7. TREMELIMUMAB. [Suspect]
     Active Substance: TREMELIMUMAB
     Indication: MALIGNANT MELANOMA
     Dosage: UNIT DOSE: 15 MG/KG
     Route: 042
     Dates: start: 20061006, end: 20061006

REACTIONS (10)
  - Cardio-respiratory arrest [Fatal]
  - Hypophagia [None]
  - Nausea [Recovered/Resolved]
  - Vomiting [Recovered/Resolved]
  - Dyspnoea [None]
  - Pyrexia [None]
  - Pneumonia [Fatal]
  - Cough [None]
  - Metastatic malignant melanoma [Fatal]
  - Pleural effusion [Recovered/Resolved with Sequelae]

NARRATIVE: CASE EVENT DATE: 20070106
